FAERS Safety Report 14425620 (Version 1)
Quarter: 2018Q1

REPORT INFORMATION
  Report Type: Spontaneous
  Country: US (occurrence: US)
  Receive Date: 20180122
  Receipt Date: 20180122
  Transmission Date: 20180509
  Serious: Yes (Other)
  Sender: FDA-Public Use
  Company Number: None

PATIENT
  Sex: Female
  Weight: 21.15 kg

DRUGS (3)
  1. TYLENOL [Concomitant]
     Active Substance: ACETAMINOPHEN
  2. OSELTAMIVIR PHOSPHATE FOR ORAL SUSPENSION [Suspect]
     Active Substance: OSELTAMIVIR PHOSPHATE
     Indication: INFLUENZA
     Dosage: ?          QUANTITY:7.5 ML;?
     Route: 048
     Dates: start: 20180116, end: 20180121
  3. CYPROHEPTADINE (PERIACTIN) [Concomitant]

REACTIONS (5)
  - Hypothermia [None]
  - Abdominal pain [None]
  - Feeling cold [None]
  - Urinary incontinence [None]
  - Chills [None]

NARRATIVE: CASE EVENT DATE: 20180121
